FAERS Safety Report 21380536 (Version 2)
Quarter: 2024Q2

REPORT INFORMATION
  Report Type: Spontaneous
  Country: FR (occurrence: FR)
  Receive Date: 20220927
  Receipt Date: 20240410
  Transmission Date: 20240716
  Serious: Yes (Death, Other)
  Sender: FDA-Public Use
  Company Number: FR-AMGEN-FRASP2022162294

PATIENT

DRUGS (4)
  1. CARFILZOMIB [Suspect]
     Active Substance: CARFILZOMIB
     Indication: Plasma cell myeloma
     Dosage: UNK
     Route: 065
  2. DARATUMUMAB [Suspect]
     Active Substance: DARATUMUMAB
     Indication: Plasma cell myeloma
     Dosage: UNK
     Route: 065
  3. LENALIDOMIDE [Suspect]
     Active Substance: LENALIDOMIDE
     Indication: Plasma cell myeloma
     Dosage: UNK
     Route: 065
  4. DEXAMETHASONE [Suspect]
     Active Substance: DEXAMETHASONE
     Indication: Plasma cell myeloma
     Dosage: UNK
     Route: 065

REACTIONS (23)
  - Septic shock [Fatal]
  - Progressive multifocal leukoencephalopathy [Fatal]
  - JC virus infection [Fatal]
  - Infection [Unknown]
  - Anaemia [Unknown]
  - Thrombocytopenia [Unknown]
  - Neutropenia [Unknown]
  - Renal failure [Unknown]
  - Deep vein thrombosis [Unknown]
  - COVID-19 [Unknown]
  - Drug-induced liver injury [Unknown]
  - Plasma cell myeloma [Unknown]
  - Tumour lysis syndrome [Unknown]
  - Cardiac failure [Unknown]
  - Neuropathy peripheral [Unknown]
  - Fatigue [Unknown]
  - Mental disorder [Unknown]
  - Rash [Unknown]
  - Constipation [Unknown]
  - Diarrhoea [Unknown]
  - Nausea [Unknown]
  - Blood stem cell harvest failure [Unknown]
  - Off label use [Unknown]
